FAERS Safety Report 20407617 (Version 1)
Quarter: 2022Q1

REPORT INFORMATION
  Report Type: Spontaneous
  Country: US (occurrence: US)
  Receive Date: 20220131
  Receipt Date: 20220131
  Transmission Date: 20220424
  Serious: Yes (Death)
  Sender: FDA-Public Use
  Company Number: US-ELI_LILLY_AND_COMPANY-US202201011070

PATIENT
  Age: 59 Year
  Sex: Male

DRUGS (2)
  1. CYRAMZA [Suspect]
     Active Substance: RAMUCIRUMAB
     Indication: Non-small cell lung cancer stage IV
     Dosage: 700 MG, CYCLICAL (FOR 60 MIN EVERY 2 WEEKS)
     Route: 042
  2. DOCETAXEL [Suspect]
     Active Substance: DOCETAXEL
     Indication: Non-small cell lung cancer stage IV
     Dosage: 60 MG, UNKNOWN; FLAT DOSE
     Route: 065

REACTIONS (2)
  - Non-small cell lung cancer stage IV [Fatal]
  - Osteonecrosis of jaw [Recovering/Resolving]
